FAERS Safety Report 17254519 (Version 5)
Quarter: 2020Q2

REPORT INFORMATION
  Report Type: Report from Study
  Country: NL (occurrence: NL)
  Receive Date: 20200109
  Receipt Date: 20200618
  Transmission Date: 20200713
  Serious: Yes (Other)
  Sender: FDA-Public Use
  Company Number: NL-CELGENEUS-NLD-20200102589

PATIENT
  Age: 71 Year
  Sex: Female
  Weight: 66.2 kg

DRUGS (12)
  1. EUTHYROX [Concomitant]
     Active Substance: LEVOTHYROXINE SODIUM
     Indication: HYPOTHYROIDISM
     Dosage: 75 MEQ
     Route: 065
     Dates: start: 20180726
  2. VELCADE [Suspect]
     Active Substance: BORTEZOMIB
     Indication: PLASMA CELL MYELOMA
     Dosage: 9 MILLIGRAM
     Route: 058
     Dates: start: 20121217, end: 20130218
  3. VALSARTAN. [Concomitant]
     Active Substance: VALSARTAN
     Indication: HYPERTENSION
     Dosage: 40 MILLIGRAM
     Route: 065
     Dates: start: 20160418
  4. MELPHALAN. [Suspect]
     Active Substance: MELPHALAN
     Indication: PLASMA CELL MYELOMA
     Dosage: 340 MILLIGRAM
     Route: 041
     Dates: start: 20130518, end: 20130518
  5. MELPHALAN. [Suspect]
     Active Substance: MELPHALAN
     Route: 065
     Dates: start: 20130521
  6. DEXAMETHASONE. [Suspect]
     Active Substance: DEXAMETHASONE
     Indication: PLASMA CELL MYELOMA
     Dosage: 2DAY X 40MG
     Route: 048
     Dates: start: 20121217, end: 20130218
  7. FILGRASTIM [Suspect]
     Active Substance: FILGRASTIM
     Indication: PLASMA CELL MYELOMA
     Route: 058
     Dates: start: 20130401, end: 20130401
  8. LENALIDOMIDE [Suspect]
     Active Substance: LENALIDOMIDE
     Route: 048
     Dates: start: 20160906, end: 20161101
  9. LENALIDOMIDE [Suspect]
     Active Substance: LENALIDOMIDE
     Indication: PLASMA CELL MYELOMA
     Route: 048
     Dates: start: 20130729, end: 20160807
  10. DEXAMETHASONE. [Suspect]
     Active Substance: DEXAMETHASONE
     Indication: ACUTE LYMPHOCYTIC LEUKAEMIA
     Route: 037
     Dates: start: 20191219
  11. ADALAT [Concomitant]
     Active Substance: NIFEDIPINE
     Indication: HYPERTENSION
     Route: 065
  12. CYCLOPHOSPHAMIDE. [Suspect]
     Active Substance: CYCLOPHOSPHAMIDE
     Indication: PLASMA CELL MYELOMA
     Dosage: 1720 MILLIGRAM
     Route: 041
     Dates: start: 20121217, end: 20130218

REACTIONS (1)
  - Acute lymphocytic leukaemia [Not Recovered/Not Resolved]

NARRATIVE: CASE EVENT DATE: 20191210
